FAERS Safety Report 8533721-X (Version None)
Quarter: 2012Q3

REPORT INFORMATION
  Report Type: 
  Country: None (occurrence: None)
  Receive Date: 20120724
  Receipt Date: 20120716
  Transmission Date: 20120928
  Serious: Yes (Hospitalization)
  Sender: FDA-Public Use
  Company Number: US-CELGENEUS-163-21880-12070136

PATIENT
  Sex: Male
  Weight: 78.996 kg

DRUGS (7)
  1. WARFARIN SODIUM [Concomitant]
     Route: 065
  2. TAMSULOSIN HCL [Concomitant]
     Route: 065
  3. PREDNISONE [Concomitant]
     Route: 065
  4. REVLIMID [Suspect]
     Indication: MYELODYSPLASTIC SYNDROME
     Dosage: 5 MILLIGRAM
     Route: 048
     Dates: start: 20120620, end: 20120624
  5. PRANDIN [Concomitant]
     Route: 065
  6. CHOLESTYRAMINE [Concomitant]
     Route: 065
  7. OMEPRAZOLE [Concomitant]
     Route: 065

REACTIONS (4)
  - PHARYNGEAL OEDEMA [None]
  - VASCULITIS [None]
  - SWELLING FACE [None]
  - LIP SWELLING [None]
